FAERS Safety Report 8799335 (Version 1)
Quarter: 2012Q4

REPORT INFORMATION
  Report Type: 
  Country: US (occurrence: US)
  Receive Date: 20120919
  Receipt Date: 20120919
  Transmission Date: 20130627
  Serious: Yes (Other)
  Sender: FDA-Public Use
  Company Number: US-ELI_LILLY_AND_COMPANY-US201209002301

PATIENT

DRUGS (1)
  1. CYMBALTA [Suspect]
     Indication: OSTEOARTHRITIS
     Dosage: 60 mg, unknown
     Route: 065

REACTIONS (1)
  - Bipolar disorder [Recovered/Resolved]
